FAERS Safety Report 14577626 (Version 1)
Quarter: 2018Q1

REPORT INFORMATION
  Report Type: Report from Study
  Country: JP (occurrence: JP)
  Receive Date: 20180227
  Receipt Date: 20180227
  Transmission Date: 20180509
  Serious: Yes (Death, Other)
  Sender: FDA-Public Use
  Company Number: JP-BRISTOL-MYERS SQUIBB COMPANY-BMSP1997-04226

PATIENT
  Age: 22 Year
  Sex: Male
  Weight: 63 kg

DRUGS (5)
  1. CRIXIVAN [Concomitant]
     Active Substance: INDINAVIR SULFATE
     Indication: ACQUIRED IMMUNODEFICIENCY SYNDROME
     Dosage: UNK
     Route: 048
     Dates: start: 19971110, end: 19981031
  2. STAVUDINE. [Suspect]
     Active Substance: STAVUDINE
     Indication: ACQUIRED IMMUNODEFICIENCY SYNDROME
     Dosage: 80 MG, UNK
     Route: 048
     Dates: start: 19971110, end: 19981214
  3. RETROVIR [Concomitant]
     Active Substance: ZIDOVUDINE
     Indication: ACQUIRED IMMUNODEFICIENCY SYNDROME
     Dosage: UNK
     Route: 048
     Dates: start: 19971013, end: 19971109
  4. EPIVIR [Concomitant]
     Active Substance: LAMIVUDINE
     Indication: ACQUIRED IMMUNODEFICIENCY SYNDROME
     Dosage: UNK
     Route: 048
     Dates: start: 19971013, end: 19981214
  5. INVIRASE [Concomitant]
     Active Substance: SAQUINAVIR MESYLATE
     Indication: ACQUIRED IMMUNODEFICIENCY SYNDROME
     Dosage: UNK
     Route: 048
     Dates: start: 19971013, end: 19971109

REACTIONS (2)
  - Hyperbilirubinaemia [Recovered/Resolved]
  - Completed suicide [Fatal]

NARRATIVE: CASE EVENT DATE: 19980406
